FAERS Safety Report 8521890-7 (Version None)
Quarter: 2012Q3

REPORT INFORMATION
  Report Type: 
  Country: None (occurrence: None)
  Receive Date: 20120719
  Receipt Date: 20120711
  Transmission Date: 20120928
  Serious: No
  Sender: FDA-Public Use
  Company Number: DE-JNJFOC-20120704295

PATIENT
  Sex: Male
  Weight: 74 kg

DRUGS (5)
  1. DIPYRONE TAB [Concomitant]
  2. DOXACOR [Concomitant]
  3. METHOHEXAL [Concomitant]
  4. XARELTO [Suspect]
     Indication: THROMBOSIS PROPHYLAXIS
     Dosage: PATIENT HAD 9 DAYS OF DRUG ADMINISTRATION
     Route: 048
     Dates: start: 20120622, end: 20120630
  5. INDAPAMIDE [Concomitant]

REACTIONS (3)
  - HYPERVENTILATION [None]
  - ASTHENIA [None]
  - MENTAL DISORDER [None]
